FAERS Safety Report 10386188 (Version 1)
Quarter: 2014Q1

REPORT INFORMATION
  Report Type: Spontaneous
  Country: US (occurrence: None)
  Receive Date: 20140306
  Receipt Date: 20140306
  Transmission Date: 20141002
  Serious: Yes (Other)
  Sender: FDA-Public Use
  Company Number: 163-21880-13083320

PATIENT
  Age: 62 Year
  Sex: Male

DRUGS (9)
  1. REVLIMID (LENALIDOMIDE) 25 MILLIGRAM, CAPSULES) [Suspect]
     Indication: PLASMA CELL MYELOMA
     Route: 048
     Dates: start: 201208
  2. ACYCLOVIR (ACICLOVIR) [Concomitant]
  3. ATORVASTATIN (ATORVASTATIN) [Concomitant]
  4. DAPSONE (DAPSONE) [Concomitant]
  5. FENTANYL (FENTANYL) (POULTICE OR PATCH) [Concomitant]
  6. GABAPENTIN (GABAPENTIN) [Concomitant]
  7. OMEPRAZOLE (OMEPRAZOLE) [Concomitant]
  8. SERTRALINE (SERTRALINE) [Concomitant]
  9. TESTOSTERONE (TESTOSTERONE) [Concomitant]

REACTIONS (1)
  - Neutropenia [None]
